FAERS Safety Report 7820498-6 (Version None)
Quarter: 2011Q4

REPORT INFORMATION
  Report Type: 
  Country: None (occurrence: None)
  Receive Date: 20111012
  Receipt Date: 20110927
  Transmission Date: 20120403
  Serious: Yes (Hospitalization)
  Sender: FDA-Public Use
  Company Number: 2010SP018898

PATIENT
  Age: 47 Year
  Sex: Male
  Weight: 146.0582 kg

DRUGS (21)
  1. REMICADE [Suspect]
     Indication: HEPATITIS C
     Dosage: IV
     Route: 042
     Dates: start: 20100127, end: 20100326
  2. ASPIRIN [Concomitant]
  3. POTASSIUM [Concomitant]
  4. OMEPRAZOLE [Concomitant]
  5. NORTROPTYLINE [Concomitant]
  6. ZOLOFT [Concomitant]
  7. HYDROCODONE BITARTRATE [Concomitant]
  8. IBUPROPEN /00109201/ [Concomitant]
  9. LASIX [Concomitant]
  10. POTASSIUM CHLORIDE [Concomitant]
  11. PROPRANOLOL [Concomitant]
  12. NEURONTIN [Concomitant]
  13. PEG-INTRON [Suspect]
     Indication: HEPATITIS C
     Dosage: 150 MCG; SC
     Route: 058
     Dates: start: 20100127, end: 20100326
  14. NADOLOL [Concomitant]
  15. AMBIEN [Concomitant]
  16. FLEXERIL [Concomitant]
  17. LEXAPRO [Concomitant]
  18. REBETOL [Suspect]
     Indication: HEPATITIS C
     Dosage: 1400 MG; PO
     Route: 048
     Dates: start: 20100127, end: 20100326
  19. CELEXA [Concomitant]
  20. SPIRONOLACTONE [Concomitant]
  21. KRISTALOSE [Concomitant]

REACTIONS (26)
  - ABSCESS [None]
  - HAEMOLYSIS [None]
  - CONFUSIONAL STATE [None]
  - URINARY TRACT INFECTION STAPHYLOCOCCAL [None]
  - ATRIAL FIBRILLATION [None]
  - GENERALISED OEDEMA [None]
  - ASTHENIA [None]
  - ANAEMIA [None]
  - HYPERKALAEMIA [None]
  - ELECTROLYTE IMBALANCE [None]
  - HAEMORRHOIDS [None]
  - BACTERAEMIA [None]
  - RENAL FAILURE ACUTE [None]
  - ASCITES [None]
  - HYPONATRAEMIA [None]
  - HAEMORRHAGE [None]
  - OCCULT BLOOD POSITIVE [None]
  - BLOOD BILIRUBIN INCREASED [None]
  - OEDEMA PERIPHERAL [None]
  - GASTRITIS [None]
  - LUNG NEOPLASM [None]
  - COLONIC POLYP [None]
  - GASTROINTESTINAL VASCULAR MALFORMATION [None]
  - MENTAL STATUS CHANGES [None]
  - SEPTIC EMBOLUS [None]
  - SPLENOMEGALY [None]
